FAERS Safety Report 10673567 (Version 1)
Quarter: 2014Q4

REPORT INFORMATION
  Report Type: Spontaneous
  Country: US (occurrence: None)
  Receive Date: 20141222
  Receipt Date: 20141222
  Transmission Date: 20150529
  Serious: Yes (Life-Threatening)
  Sender: FDA-Public Use
  Company Number: None

PATIENT
  Age: 76 Year
  Weight: 68 kg

DRUGS (2)
  1. PACLITAXEL 300MG/50ML HOSPIRA [Suspect]
     Active Substance: PACLITAXEL
     Route: 042
     Dates: start: 20141219
  2. PACLITAXEL 300MG/50ML HOSPIRA [Suspect]
     Active Substance: PACLITAXEL
     Indication: METASTATIC UTERINE CANCER
     Route: 042
     Dates: start: 20141219

REACTIONS (3)
  - Hypotension [None]
  - Chest pain [None]
  - Flushing [None]

NARRATIVE: CASE EVENT DATE: 20141219
